FAERS Safety Report 7922752-6 (Version None)
Quarter: 2011Q4

REPORT INFORMATION
  Report Type: 
  Country: None (occurrence: None)
  Receive Date: 20111117
  Receipt Date: 20110124
  Transmission Date: 20120403
  Serious: No
  Sender: FDA-Public Use
  Company Number: US-AMGEN-USASP2011004175

PATIENT
  Age: 60 Year
  Sex: Female

DRUGS (8)
  1. LEXAPRO [Concomitant]
     Dosage: 5 MG, UNK
  2. ATENOLOL [Concomitant]
     Dosage: 50 MG, UNK
  3. VENTOLIN HFA [Concomitant]
  4. METHOTREXATE [Concomitant]
  5. LORAZEPAM [Concomitant]
  6. TYLENOL                            /00435101/ [Concomitant]
  7. ENBREL [Suspect]
     Indication: PRODUCT USED FOR UNKNOWN INDICATION
     Dosage: 50 MG, QWK
     Route: 058
  8. OMEPRAZOLE [Concomitant]
     Dosage: 10 MG, UNK

REACTIONS (2)
  - MIGRAINE [None]
  - SUBCUTANEOUS ABSCESS [None]
